FAERS Safety Report 9639512 (Version 1)
Quarter: 2013Q4

REPORT INFORMATION
  Report Type: Report from Study
  Country: US (occurrence: US)
  Receive Date: 20131023
  Receipt Date: 20131023
  Transmission Date: 20140711
  Serious: Yes (Death)
  Sender: FDA-Public Use
  Company Number: US-ROCHE-1292299

PATIENT
  Sex: Female

DRUGS (1)
  1. CATHFLO ACTIVASE [Suspect]
     Route: 065
     Dates: start: 20130603

REACTIONS (1)
  - Cardiac death [Fatal]
